FAERS Safety Report 22191476 (Version 1)
Quarter: 2023Q2

REPORT INFORMATION
  Report Type: Spontaneous
  Country: IN (occurrence: IN)
  Receive Date: 20230410
  Receipt Date: 20230410
  Transmission Date: 20230721
  Serious: Yes (Other)
  Sender: FDA-Public Use
  Company Number: IN-MYLANLABS-2023M1037386

PATIENT
  Age: 18 Year
  Sex: Female
  Weight: 30 kg

DRUGS (2)
  1. PHENYTOIN [Interacting]
     Active Substance: PHENYTOIN
     Indication: Epilepsy
     Dosage: 200 MILLIGRAM, QD
     Route: 065
  2. VALPROATE SODIUM [Interacting]
     Active Substance: VALPROATE SODIUM
     Indication: Epilepsy
     Dosage: 600 MILLIGRAM, QD
     Route: 065

REACTIONS (11)
  - Pyramidal tract syndrome [Recovered/Resolved]
  - Gingival hypertrophy [Recovered/Resolved]
  - Action tremor [Recovered/Resolved]
  - Dysmetria [Recovered/Resolved]
  - Nystagmus [Recovered/Resolved]
  - Coordination abnormal [Recovered/Resolved]
  - Ataxia [Recovered/Resolved]
  - Cerebellar atrophy [Recovered/Resolved]
  - Toxicity to various agents [Recovered/Resolved]
  - Labelled drug-drug interaction medication error [Recovered/Resolved]
  - Hypoalbuminaemia [Unknown]
